FAERS Safety Report 6227003-9 (Version None)
Quarter: 2009Q2

REPORT INFORMATION
  Report Type: 
  Country: None (occurrence: None)
  Receive Date: 20090612
  Receipt Date: 20090605
  Transmission Date: 20091009
  Serious: Yes (Other)
  Sender: FDA-Public Use
  Company Number: US-ASTRAZENECA-2008UW09516

PATIENT
  Age: 85 Year
  Sex: Female
  Weight: 63.5 kg

DRUGS (12)
  1. CRESTOR [Suspect]
     Indication: BLOOD CHOLESTEROL INCREASED
     Route: 048
  2. PLAVIX [Concomitant]
  3. FOSAMAX [Concomitant]
  4. NIASPAN [Concomitant]
  5. NEXIUM [Concomitant]
  6. FLONASE [Concomitant]
  7. BENICAR [Concomitant]
  8. VERAPAMIL [Concomitant]
  9. XANAX [Concomitant]
  10. TRIAVIL [Concomitant]
  11. CALCIUM [Concomitant]
  12. COQ10 [Concomitant]

REACTIONS (5)
  - FALL [None]
  - LOSS OF CONSCIOUSNESS [None]
  - MUSCULAR WEAKNESS [None]
  - MYALGIA [None]
  - UPPER LIMB FRACTURE [None]
